FAERS Safety Report 24160122 (Version 4)
Quarter: 2024Q3

REPORT INFORMATION
  Report Type: Spontaneous
  Country: JP (occurrence: JP)
  Receive Date: 20240801
  Receipt Date: 20240823
  Transmission Date: 20241016
  Serious: Yes (Hospitalization)
  Sender: ARGENX BVBA
  Company Number: JP-ARGENX-2024-ARGX-JP005731

PATIENT

DRUGS (2)
  1. VYVGART [Suspect]
     Active Substance: EFGARTIGIMOD ALFA-FCAB
     Indication: Myasthenia gravis
     Dosage: UNK
     Route: 042
     Dates: start: 20240301
  2. VYVGART [Suspect]
     Active Substance: EFGARTIGIMOD ALFA-FCAB
     Dosage: UNK
     Route: 042
     Dates: end: 20240419

REACTIONS (15)
  - Oedema peripheral [Not Recovered/Not Resolved]
  - Oedema peripheral [Recovering/Resolving]
  - Hypersensitivity [Not Recovered/Not Resolved]
  - Erythema [Recovering/Resolving]
  - Erythema [Not Recovered/Not Resolved]
  - Pain [Not Recovered/Not Resolved]
  - Dysuria [Unknown]
  - Gait disturbance [Unknown]
  - Weight increased [Unknown]
  - Movement disorder [Recovering/Resolving]
  - Fluid retention [Unknown]
  - Blood pressure increased [Unknown]
  - Dyspnoea [Unknown]
  - Viral rash [Unknown]
  - Palmar-plantar erythrodysaesthesia syndrome [Unknown]

NARRATIVE: CASE EVENT DATE: 20240301
